FAERS Safety Report 4902874-4 (Version None)
Quarter: 2006Q1

REPORT INFORMATION
  Report Type: 
  Country: None (occurrence: None)
  Receive Date: 20060207
  Receipt Date: 20001207
  Transmission Date: 20060701
  Serious: Yes (Hospitalization)
  Sender: FDA-Public Use
  Company Number: UG-2000-BP-02249

PATIENT
  Age: 3 Month
  Sex: Female

DRUGS (4)
  1. VIRAMUNE [Suspect]
     Indication: ACQUIRED IMMUNODEFICIENCY SYNDROME
     Route: 048
     Dates: start: 20000804, end: 20001107
  2. BACTRIM [Concomitant]
  3. AQUEOUS CREAM [Concomitant]
  4. MYCOSTATIN DROPS [Concomitant]

REACTIONS (16)
  - BLOOD BICARBONATE DECREASED [None]
  - BLOOD POTASSIUM INCREASED [None]
  - BLOOD SODIUM DECREASED [None]
  - COUGH [None]
  - COXSACKIE VIRAL INFECTION [None]
  - ENTEROVIRUS INFECTION [None]
  - HAEMOGLOBIN DECREASED [None]
  - LIVER PALPABLE SUBCOSTAL [None]
  - PALLOR [None]
  - PHARYNGITIS [None]
  - RASH ERYTHEMATOUS [None]
  - RASH PAPULAR [None]
  - SEPSIS [None]
  - SPLEEN PALPABLE [None]
  - VIRAL INFECTION [None]
  - VOMITING [None]
